FAERS Safety Report 24029599 (Version 1)
Quarter: 2024Q2

REPORT INFORMATION
  Report Type: Report from Study
  Country: DE (occurrence: DE)
  Receive Date: 20240628
  Receipt Date: 20240628
  Transmission Date: 20240716
  Serious: Yes (Other)
  Sender: FDA-Public Use
  Company Number: DE-REMICADEPIB4003-4904-2889

PATIENT
  Age: 13 Year
  Sex: Female

DRUGS (4)
  1. REMICADE [Suspect]
     Active Substance: INFLIXIMAB
     Indication: Crohn^s disease
     Route: 041
     Dates: start: 20100331, end: 20121001
  2. REMICADE [Suspect]
     Active Substance: INFLIXIMAB
     Route: 041
     Dates: start: 20121112, end: 20121112
  3. REMICADE [Suspect]
     Active Substance: INFLIXIMAB
     Route: 041
     Dates: start: 20100331, end: 20100415
  4. REMICADE [Suspect]
     Active Substance: INFLIXIMAB
     Route: 041
     Dates: start: 20100927, end: 20121001

REACTIONS (13)
  - Haematochezia [Recovered/Resolved]
  - Constipation [Recovered/Resolved]
  - Headache [Recovered/Resolved]
  - Conjunctivitis [Recovered/Resolved]
  - Staphylococcal infection [Recovered/Resolved]
  - Dermatitis [Recovered/Resolved]
  - Fructose intolerance [Not Recovered/Not Resolved]
  - Iron deficiency [Recovered/Resolved]
  - Malnutrition [Recovered/Resolved]
  - Stenosis [Recovered/Resolved]
  - Abdominal pain upper [Recovered/Resolved]
  - Dehydration [Recovered/Resolved]
  - Zinc deficiency [Recovered/Resolved]

NARRATIVE: CASE EVENT DATE: 20100331
